FAERS Safety Report 19867892 (Version 1)
Quarter: 2021Q3

REPORT INFORMATION
  Report Type: Spontaneous
  Country: AU (occurrence: AU)
  Receive Date: 20210922
  Receipt Date: 20210922
  Transmission Date: 20211014
  Serious: No
  Sender: FDA-Public Use
  Company Number: AU-ALKEM LABORATORIES LIMITED-AU-ALKEM-2021-03924

PATIENT
  Sex: Female

DRUGS (2)
  1. SILDENAFIL. [Suspect]
     Active Substance: SILDENAFIL
     Indication: PRODUCT USED FOR UNKNOWN INDICATION
     Dosage: UNK
     Route: 065
  2. OPSUMIT [Suspect]
     Active Substance: MACITENTAN
     Indication: PRODUCT USED FOR UNKNOWN INDICATION
     Dosage: UNK
     Route: 065

REACTIONS (4)
  - Diarrhoea [Unknown]
  - Dyspnoea [Unknown]
  - Vomiting [Unknown]
  - Headache [Unknown]
